FAERS Safety Report 8862645 (Version 1)
Quarter: 2012Q4

REPORT INFORMATION
  Report Type: 
  Country: US (occurrence: US)
  Receive Date: 20121026
  Receipt Date: 20121026
  Transmission Date: 20130627
  Serious: No
  Sender: FDA-Public Use
  Company Number: US-009507513-1208USA010568

PATIENT
  Sex: Female

DRUGS (1)
  1. COZAAR [Suspect]
     Dosage: UNK, qd
     Route: 048
     Dates: start: 201205

REACTIONS (4)
  - Swelling [Unknown]
  - Drug ineffective [Unknown]
  - Paraesthesia [Unknown]
  - Headache [Unknown]
